FAERS Safety Report 4947951-7 (Version None)
Quarter: 2006Q1

REPORT INFORMATION
  Report Type: 
  Country: None (occurrence: None)
  Receive Date: 20060320
  Receipt Date: 20060202
  Transmission Date: 20060701
  Serious: Yes (Death)
  Sender: FDA-Public Use
  Company Number: IT-NOVOPROD-250553

PATIENT
  Age: 44 Year
  Sex: Female
  Weight: 45 kg

DRUGS (2)
  1. NOVOSEVEN [Suspect]
     Indication: TRAUMATIC HAEMORRHAGE
     Dosage: 2.4 MG, UNK
     Route: 042
     Dates: start: 20050901, end: 20050901
  2. NOVOSEVEN [Suspect]
     Dosage: 2.4 MG, (53 MICROGRAM/KG)

REACTIONS (7)
  - CONDITION AGGRAVATED [None]
  - HAEMORRHAGE [None]
  - HAEMOTHORAX [None]
  - INFECTION [None]
  - MEDIASTINAL DISORDER [None]
  - RESPIRATORY FAILURE [None]
  - THERAPEUTIC RESPONSE DECREASED [None]
